FAERS Safety Report 10907818 (Version 1)
Quarter: 2015Q1

REPORT INFORMATION
  Report Type: Spontaneous
  Country: US (occurrence: US)
  Receive Date: 20150312
  Receipt Date: 20150312
  Transmission Date: 20150721
  Serious: No
  Sender: FDA-Public Use
  Company Number: US-INCYTE CORPORATION-2014IN003796

PATIENT
  Sex: Female

DRUGS (8)
  1. CALCIUM CARBONATE. [Concomitant]
     Active Substance: CALCIUM CARBONATE
     Dosage: 500 (125), UNK
  2. COCONUT OIL [Concomitant]
     Active Substance: COCONUT OIL
  3. ECOTRIN [Concomitant]
     Active Substance: ASPIRIN
     Dosage: 325 MG, UNK
  4. BLACK COHOSH                       /01456801/ [Concomitant]
     Dosage: 540 MG, UNK
  5. VITAMIN D                          /00107901/ [Concomitant]
     Active Substance: ERGOCALCIFEROL
     Dosage: 1000 UN, UNK
  6. JAKAFI [Suspect]
     Active Substance: RUXOLITINIB
     Dosage: 20 MG, BID
     Route: 048
     Dates: start: 20141101, end: 2014
  7. JAKAFI [Suspect]
     Active Substance: RUXOLITINIB
     Dosage: NOT SPECIFIED
     Route: 048
     Dates: start: 2014
  8. MACA [Concomitant]
     Dosage: 500 MG, UNK

REACTIONS (1)
  - Adverse drug reaction [Unknown]
